FAERS Safety Report 18049482 (Version 1)
Quarter: 2020Q3

REPORT INFORMATION
  Report Type: Spontaneous
  Country: US (occurrence: US)
  Receive Date: 20200721
  Receipt Date: 20200721
  Transmission Date: 20201103
  Serious: Yes (Death, Hospitalization)
  Sender: FDA-Public Use
  Company Number: None

PATIENT
  Age: 12 Year
  Sex: Female
  Weight: 62.2 kg

DRUGS (4)
  1. VINCRISTINE SULFATE. [Suspect]
     Active Substance: VINCRISTINE SULFATE
     Dates: end: 20200702
  2. ONCASPAR [Suspect]
     Active Substance: PEGASPARGASE
     Dates: end: 20200622
  3. DAUNORUBICIN [Suspect]
     Active Substance: DAUNORUBICIN
     Dates: end: 20200702
  4. PREDNISOLONE. [Suspect]
     Active Substance: PREDNISOLONE
     Dates: end: 20200708

REACTIONS (17)
  - Hydrocephalus [None]
  - Neoplasm malignant [None]
  - Headache [None]
  - Photophobia [None]
  - Intracranial pressure increased [None]
  - Cerebral haemorrhage [None]
  - Febrile neutropenia [None]
  - Cerebral congestion [None]
  - Cerebral infarction [None]
  - Cerebral venous thrombosis [None]
  - Hypercoagulation [None]
  - Brain oedema [None]
  - Intracranial mass [None]
  - Surgical procedure repeated [None]
  - Adverse drug reaction [None]
  - Cerebral thrombosis [None]
  - Metastases to central nervous system [None]

NARRATIVE: CASE EVENT DATE: 20200702
